FAERS Safety Report 7066927-X (Version None)
Quarter: 2010Q4

REPORT INFORMATION
  Report Type: 
  Country: None (occurrence: None)
  Receive Date: 20101028
  Receipt Date: 20101020
  Transmission Date: 20110411
  Serious: Yes (Hospitalization)
  Sender: FDA-Public Use
  Company Number: 166735

PATIENT
  Age: 45 Year
  Sex: Male
  Weight: 88 kg

DRUGS (7)
  1. AVONEX [Suspect]
     Indication: MULTIPLE SCLEROSIS
     Route: 030
     Dates: start: 19980201
  2. AVONEX [Suspect]
     Route: 030
  3. AVONEX [Suspect]
     Route: 030
  4. IBUPROFEN [Concomitant]
     Indication: OSTEOARTHRITIS
  5. VALIUM [Concomitant]
     Indication: MULTIPLE SCLEROSIS
     Dates: start: 19980101
  6. VICODIN [Concomitant]
     Indication: OSTEOARTHRITIS
  7. MODAFINIL [Concomitant]
     Indication: MULTIPLE SCLEROSIS
     Dates: start: 20020701

REACTIONS (8)
  - COMA [None]
  - GRAND MAL CONVULSION [None]
  - LUNG INFECTION [None]
  - MEDICAL DEVICE COMPLICATION [None]
  - MENTAL DISORDER [None]
  - PETIT MAL EPILEPSY [None]
  - RESPIRATORY ARREST [None]
  - SLEEP APNOEA SYNDROME [None]
